FAERS Safety Report 4595867-0 (Version None)
Quarter: 2005Q1

REPORT INFORMATION
  Report Type: 
  Country: None (occurrence: None)
  Receive Date: 20050302
  Receipt Date: 20050105
  Transmission Date: 20050727
  Serious: Yes (Life-Threatening, Hospitalization, Other)
  Sender: FDA-Public Use
  Company Number: 200510236GDDC

PATIENT
  Age: 55 Year
  Sex: Male

DRUGS (2)
  1. KETEK [Suspect]
     Indication: SINUSITIS
     Route: 048
     Dates: start: 20041229, end: 20041230
  2. NEO-CITRAN EXTRA STRENGTH [Concomitant]
     Indication: SINUSITIS
     Dosage: DOSE: UNK
     Dates: start: 20041229

REACTIONS (8)
  - BLOOD URINE PRESENT [None]
  - CHILLS [None]
  - CONVULSION [None]
  - HAEMOLYTIC ANAEMIA [None]
  - HEPATIC FAILURE [None]
  - HYPERHIDROSIS [None]
  - PYREXIA [None]
  - RENAL FAILURE [None]
